FAERS Safety Report 25586644 (Version 1)
Quarter: 2025Q3

REPORT INFORMATION
  Report Type: Spontaneous
  Country: US (occurrence: None)
  Receive Date: 20250720
  Receipt Date: 20250720
  Transmission Date: 20251020
  Serious: Yes (Hospitalization, Disabling, Other)
  Sender: FDA-CTU
  Company Number: None

PATIENT
  Age: 43 Year
  Sex: Female
  Weight: 65.25 kg

DRUGS (6)
  1. CYMBALTA [Suspect]
     Active Substance: DULOXETINE HYDROCHLORIDE
     Indication: Generalised anxiety disorder
     Route: 048
  2. GABAPENTIN [Concomitant]
     Active Substance: GABAPENTIN
  3. KLONOPIN [Concomitant]
     Active Substance: CLONAZEPAM
  4. VITAMIN D3 [Concomitant]
     Active Substance: CHOLECALCIFEROL
  5. GINGER [Concomitant]
     Active Substance: GINGER
  6. Pepsid AC [Concomitant]

REACTIONS (26)
  - Drug withdrawal syndrome [None]
  - Inappropriate schedule of product discontinuation [None]
  - Catatonia [None]
  - Dyspepsia [None]
  - Gastrooesophageal reflux disease [None]
  - Tremor [None]
  - Insomnia [None]
  - Fear [None]
  - Anxiety [None]
  - Panic attack [None]
  - Merycism [None]
  - Electric shock sensation [None]
  - Vomiting [None]
  - Electric shock sensation [None]
  - Burning sensation [None]
  - Pallor [None]
  - Hot flush [None]
  - Feeling hot [None]
  - Nausea [None]
  - Dizziness [None]
  - Dizziness [None]
  - Abdominal discomfort [None]
  - Gastrointestinal sounds abnormal [None]
  - Diarrhoea [None]
  - Fatigue [None]
  - Depression [None]

NARRATIVE: CASE EVENT DATE: 20241125
